FAERS Safety Report 13356662 (Version 1)
Quarter: 2017Q1

REPORT INFORMATION
  Report Type: Report from Study
  Country: US (occurrence: US)
  Receive Date: 20170321
  Receipt Date: 20170321
  Transmission Date: 20170429
  Serious: Yes (Hospitalization)
  Sender: FDA-Public Use
  Company Number: US-ACTELION-A-US2017-148806

PATIENT
  Age: 80 Year
  Sex: Female
  Weight: 67.57 kg

DRUGS (4)
  1. DILTIAZEM. [Concomitant]
     Active Substance: DILTIAZEM
  2. UPTRAVI [Suspect]
     Active Substance: SELEXIPAG
     Dosage: 200 MCG, BID
     Route: 048
  3. LETAIRIS [Concomitant]
     Active Substance: AMBRISENTAN
  4. UPTRAVI [Suspect]
     Active Substance: SELEXIPAG
     Indication: PULMONARY ARTERIAL HYPERTENSION
     Dosage: 600 MCG, BID
     Route: 048
     Dates: start: 20161227

REACTIONS (11)
  - Depression [Unknown]
  - Headache [Unknown]
  - Decreased appetite [Unknown]
  - Joint swelling [Unknown]
  - Asthenia [Unknown]
  - Fatigue [Unknown]
  - Dysphagia [Unknown]
  - Nausea [Unknown]
  - Gallbladder disorder [Unknown]
  - Feeling abnormal [Unknown]
  - Adjustment disorder with depressed mood [Unknown]
